FAERS Safety Report 24319080 (Version 2)
Quarter: 2024Q3

REPORT INFORMATION
  Report Type: Report from Study
  Country: US (occurrence: US)
  Receive Date: 20240913
  Receipt Date: 20240918
  Transmission Date: 20241017
  Serious: Yes (Hospitalization, Other)
  Sender: ABBVIE
  Company Number: US-ABBVIE-5916046

PATIENT
  Sex: Female
  Weight: 79.378 kg

DRUGS (1)
  1. CREON [Suspect]
     Active Substance: PANCRELIPASE AMYLASE\PANCRELIPASE LIPASE\PANCRELIPASE PROTEASE
     Indication: Pancreatic failure
     Dosage: 1 EVERY MEAL 1 EVERY SNACKS
     Route: 048
     Dates: start: 20170909

REACTIONS (11)
  - Crohn^s disease [Not Recovered/Not Resolved]
  - Seizure [Recovering/Resolving]
  - Colostomy [Unknown]
  - Fall [Recovering/Resolving]
  - Rib fracture [Recovering/Resolving]
  - Head injury [Unknown]
  - Amnesia [Recovering/Resolving]
  - Joint dislocation [Unknown]
  - Pain [Not Recovered/Not Resolved]
  - Joint dislocation [Recovering/Resolving]
  - Accident [Unknown]

NARRATIVE: CASE EVENT DATE: 20240101
